FAERS Safety Report 7883146-5 (Version None)
Quarter: 2011Q4

REPORT INFORMATION
  Report Type: 
  Country: None (occurrence: None)
  Receive Date: 20111102
  Receipt Date: 20111020
  Transmission Date: 20120403
  Serious: Yes (Other)
  Sender: FDA-Public Use
  Company Number: BR-BRISTOL-MYERS SQUIBB COMPANY-16207672

PATIENT
  Age: 70 Year
  Sex: Female

DRUGS (5)
  1. JANUVIA [Concomitant]
     Route: 048
  2. VILDAGLIPTIN + METFORMIN HYDROCLORIDE [Concomitant]
  3. SIMVASTATIN [Concomitant]
     Route: 048
  4. METFORMIN HCL [Suspect]
     Dosage: STRENGTH: 850MG TABS
     Route: 048
  5. GLYBURIDE [Concomitant]

REACTIONS (3)
  - HYPERTENSION [None]
  - HYPOAESTHESIA [None]
  - DRUG INEFFECTIVE [None]
